FAERS Safety Report 9541935 (Version 1)
Quarter: 2013Q2

REPORT INFORMATION
  Report Type: Spontaneous
  Country: US (occurrence: None)
  Receive Date: 20130524
  Receipt Date: 20130524
  Transmission Date: 20140414
  Serious: Yes (Other)
  Sender: FDA-Public Use
  Company Number: PHEH2012US025466

PATIENT
  Age: 35 Year
  Sex: Female
  Weight: 40.8 kg

DRUGS (3)
  1. GILENYA [Suspect]
     Indication: MULTIPLE SCLEROSIS
     Route: 048
     Dates: start: 20121219
  2. VICODIN (HYDROCODONE BITARTRATE, PARACETAMOL) [Concomitant]
  3. CLONAZEPAM (CLONAZEPAM) (CLONAZEPAM) [Concomitant]

REACTIONS (5)
  - Hypotension [None]
  - Fatigue [None]
  - Neuralgia [None]
  - Abdominal pain upper [None]
  - Malaise [None]
